FAERS Safety Report 4917837-2 (Version None)
Quarter: 2006Q1

REPORT INFORMATION
  Report Type: 
  Country: None (occurrence: None)
  Receive Date: 20060214
  Receipt Date: 20060131
  Transmission Date: 20060701
  Serious: Yes (Death)
  Sender: FDA-Public Use
  Company Number: A-CH2006-11565

PATIENT
  Age: 65 Year
  Sex: Male
  Weight: 82 kg

DRUGS (3)
  1. TRACLEER [Suspect]
     Indication: PULMONARY HYPERTENSION
     Dosage: 125 MG, BID, ORAL  : 62.5 MG, BID, ORAL
     Route: 048
  2. COUMARIN [Concomitant]
  3. ROSUVASTATIN [Concomitant]

REACTIONS (4)
  - CARDIAC ARREST [None]
  - CIRCULATORY COLLAPSE [None]
  - SUDDEN CARDIAC DEATH [None]
  - VENTRICULAR FIBRILLATION [None]
